FAERS Safety Report 19274973 (Version 1)
Quarter: 2021Q2

REPORT INFORMATION
  Report Type: Spontaneous
  Country: NL (occurrence: NL)
  Receive Date: 20210519
  Receipt Date: 20210519
  Transmission Date: 20210717
  Serious: Yes (Death, Hospitalization)
  Sender: FDA-Public Use
  Company Number: NL-TEVA-2021-NL-1911325

PATIENT
  Sex: Male
  Weight: 80 kg

DRUGS (3)
  1. IRINOTECAN INFOPL CONC 20MG/ML / BRAND NAME NOT SPECIFIED [Suspect]
     Active Substance: IRINOTECAN
     Indication: PANCREATIC CARCINOMA
     Dosage: 180MG / M2 (ONCE EVERY 2 WEEKS AS PART OF FOLFIRINOX TREATMENTS), THERAPY END DATE: ASKU
     Route: 065
     Dates: start: 20200205
  2. OXALIPLATINE INFOPL CONC 5MG/ML / BRAND NAME NOT SPECIFIED [Suspect]
     Active Substance: OXALIPLATIN
     Indication: PANCREATIC CARCINOMA
     Dosage: 63.75MG / M2 (1X PER 2 WEEKS IN THE CONTEXT OF FOLFORINOX TREATMENTS), THERAPY END DATE: ASKU
     Route: 065
     Dates: start: 20200205
  3. FLUOROURACIL INJVLST 50MG/ML / BRAND NAME NOT SPECIFIED [Suspect]
     Active Substance: FLUOROURACIL
     Indication: PANCREATIC CARCINOMA
     Dosage: 2800MG / M2 (3 DAYS AND THEN 11 DAYS NOT, THEN 3 DAYS AGAIN AS PART OF FOLFIRINOX COURSES), THERAPY
     Route: 065
     Dates: start: 20200205

REACTIONS (1)
  - Pneumonitis [Fatal]
